FAERS Safety Report 7110857-1 (Version None)
Quarter: 2010Q4

REPORT INFORMATION
  Report Type: 
  Country: None (occurrence: None)
  Receive Date: 20101118
  Receipt Date: 20101105
  Transmission Date: 20110411
  Serious: Yes (Other)
  Sender: FDA-Public Use
  Company Number: PHHY2010JP75238

PATIENT
  Age: 25 Year
  Sex: Male

DRUGS (1)
  1. VOLTAREN [Suspect]
     Indication: PYREXIA
     Route: 048

REACTIONS (2)
  - RENAL FAILURE ACUTE [None]
  - SEPTIC SHOCK [None]
